FAERS Safety Report 7356241-7 (Version None)
Quarter: 2011Q1

REPORT INFORMATION
  Report Type: 
  Country: None (occurrence: None)
  Receive Date: 20110316
  Receipt Date: 20110315
  Transmission Date: 20110831
  Serious: No
  Sender: FDA-Public Use
  Company Number: AT-ELI_LILLY_AND_COMPANY-AT201103004521

PATIENT
  Age: 19 Year
  Sex: Male

DRUGS (2)
  1. ABILIFY [Concomitant]
     Dosage: 15 MG, DAILY (1/D)
  2. ZYPREXA [Suspect]
     Indication: SCHIZOPHRENIA
     Dosage: 20 MG, DAILY (1/D)

REACTIONS (2)
  - LEUKOPENIA [None]
  - BLOOD CREATINE PHOSPHOKINASE INCREASED [None]
